FAERS Safety Report 8872803 (Version 1)
Quarter: 2012Q4

REPORT INFORMATION
  Report Type: 
  Country: US (occurrence: US)
  Receive Date: 20121026
  Receipt Date: 20121026
  Transmission Date: 20130627
  Serious: Yes (Other)
  Sender: FDA-Public Use
  Company Number: US-AMGEN-USASP2012051005

PATIENT
  Age: 61 Year
  Sex: Female
  Weight: 56.69 kg

DRUGS (14)
  1. ENBREL [Suspect]
     Indication: PRODUCT USED FOR UNKNOWN INDICATION
     Dosage: 25 mg, 2 times/wk
     Route: 058
  2. PLAQUENIL                          /00072602/ [Concomitant]
     Dosage: UNK
  3. COZAAR [Concomitant]
     Dosage: 50 mg, UNK
  4. NORVASC [Concomitant]
     Dosage: 2.5 mg, UNK
  5. LIPITOR [Concomitant]
     Dosage: 10 mg, UNK
  6. SYNTHROID [Concomitant]
     Dosage: 100 mug, UNK
  7. CALCITRIOL [Concomitant]
     Dosage: 0.5 mug, UNK
  8. AVEENO ANTI-ITCH                   /01554901/ [Concomitant]
  9. FISH OIL [Concomitant]
     Dosage: UNK
  10. CALCIUM [Concomitant]
     Dosage: 500 UNK, UNK
  11. COQ10                              /00517201/ [Concomitant]
     Dosage: 30 mg, UNK
  12. MULTIVITAMIN                       /07504101/ [Concomitant]
     Dosage: UNK
  13. CRANBERRY                          /01512301/ [Concomitant]
     Dosage: 200 mg, UNK
  14. AZELASTINE [Concomitant]
     Dosage: 0.1 %, UNK

REACTIONS (1)
  - Skin cancer [Unknown]
